FAERS Safety Report 8044168-7 (Version None)
Quarter: 2012Q1

REPORT INFORMATION
  Report Type: 
  Country: None (occurrence: None)
  Receive Date: 20120113
  Receipt Date: 20120103
  Transmission Date: 20120608
  Serious: Yes (Hospitalization)
  Sender: FDA-Public Use
  Company Number: CA-BRISTOL-MYERS SQUIBB COMPANY-15338007

PATIENT
  Age: 63 Year
  Sex: Female

DRUGS (8)
  1. FOLIC ACID [Concomitant]
  2. TRAMADOL HYDROCHLORIDE/ACETAMINOPHEN [Concomitant]
  3. DIOVAN [Concomitant]
  4. MELOXICAM [Concomitant]
  5. ORENCIA [Suspect]
     Indication: RHEUMATOID ARTHRITIS
     Dosage: NO OF INF:23 RECENT INFUSION ON 19OCT10,08NOV11,10DEC2011
     Route: 042
     Dates: start: 20100503
  6. VITAMIN D [Concomitant]
  7. PREDNISONE [Concomitant]
  8. METHOTREXATE [Suspect]

REACTIONS (5)
  - SKIN LESION [None]
  - TOOTH INFECTION [None]
  - DIARRHOEA [None]
  - WEIGHT DECREASED [None]
  - ORAL HERPES [None]
